FAERS Safety Report 22313767 (Version 4)
Quarter: 2024Q3

REPORT INFORMATION
  Report Type: Spontaneous
  Country: CA (occurrence: CA)
  Receive Date: 20230512
  Receipt Date: 20240912
  Transmission Date: 20241017
  Serious: Yes (Hospitalization)
  Sender: PFIZER
  Company Number: CA-PFIZER INC-202200156651

PATIENT
  Age: 67 Year
  Sex: Female
  Weight: 73.8 kg

DRUGS (11)
  1. RUXIENCE [Suspect]
     Active Substance: RITUXIMAB-PVVR
     Indication: Rheumatoid arthritis
     Dosage: 500 MG DAY 1 AND DAY 15
     Route: 042
     Dates: start: 20220310
  2. RUXIENCE [Suspect]
     Active Substance: RITUXIMAB-PVVR
     Dosage: 500 MG, DAY 1 AND DAY 15
     Route: 042
     Dates: start: 20220324
  3. RUXIENCE [Suspect]
     Active Substance: RITUXIMAB-PVVR
     Dosage: 500 MG, DAY 1 AND DAY 15
     Route: 042
     Dates: start: 20220913, end: 20220913
  4. RUXIENCE [Suspect]
     Active Substance: RITUXIMAB-PVVR
     Dosage: 500 MG, DAY 1 AND DAY 15
     Route: 042
     Dates: start: 20220928, end: 20220928
  5. RUXIENCE [Suspect]
     Active Substance: RITUXIMAB-PVVR
     Dosage: 500MG, DAY 0 RETREATMENT, ON DAY 1 AND DAY 15
     Route: 042
     Dates: start: 20230426, end: 20230426
  6. BETAHISTINE [Concomitant]
     Active Substance: BETAHISTINE
     Dosage: 1 DF
  7. ELIQUIS [Concomitant]
     Active Substance: APIXABAN
     Dosage: 1 DF
  8. LEFLUNOMIDE [Concomitant]
     Active Substance: LEFLUNOMIDE
     Dosage: 1 DF
  9. LEVOTHYROXINE [Concomitant]
     Active Substance: LEVOTHYROXINE\LEVOTHYROXINE SODIUM
     Dosage: 1 DF
  10. METOPROLOL [Concomitant]
     Active Substance: METOPROLOL
     Dosage: 1 DF
  11. OMEPRAZOLE [Concomitant]
     Active Substance: OMEPRAZOLE
     Dosage: 1 DF

REACTIONS (12)
  - Diarrhoea [Recovered/Resolved]
  - Myalgia [Unknown]
  - Pain in jaw [Recovered/Resolved]
  - Abdominal discomfort [Recovered/Resolved]
  - Weight fluctuation [Not Recovered/Not Resolved]
  - Drug ineffective [Unknown]
  - Product prescribing error [Unknown]
  - Nausea [Not Recovered/Not Resolved]
  - Bone density abnormal [Unknown]
  - Off label use [Unknown]
  - Off label use [Unknown]
  - Intentional product use issue [Unknown]

NARRATIVE: CASE EVENT DATE: 20220310
